FAERS Safety Report 20933397 (Version 3)
Quarter: 2022Q3

REPORT INFORMATION
  Report Type: Spontaneous
  Country: RU (occurrence: None)
  Receive Date: 20220608
  Receipt Date: 20220711
  Transmission Date: 20221027
  Serious: Yes (Other)
  Sender: FDA-Public Use
  Company Number: RU-Merck Healthcare KGaA-9327696

PATIENT
  Age: 37 Year
  Sex: Female
  Weight: 77 kg

DRUGS (1)
  1. MAVENCLAD [Suspect]
     Active Substance: CLADRIBINE
     Indication: Multiple sclerosis
     Dosage: FIRST YEAR THERAPY
     Dates: start: 202203, end: 20220412

REACTIONS (9)
  - Primary hypothyroidism [Unknown]
  - Adenomyosis [Unknown]
  - Uterine leiomyoma [Unknown]
  - Endometriosis [Unknown]
  - Goitre [Unknown]
  - Alopecia [Unknown]
  - Asthenia [Unknown]
  - Pallor [Unknown]
  - Choking sensation [Unknown]

NARRATIVE: CASE EVENT DATE: 20220101
